FAERS Safety Report 5523970-7 (Version None)
Quarter: 2007Q4

REPORT INFORMATION
  Report Type: 
  Country: None (occurrence: None)
  Receive Date: 20071121
  Receipt Date: 20071115
  Transmission Date: 20080405
  Serious: Yes (Other)
  Sender: FDA-Public Use
  Company Number: CH-ABBOTT-07P-151-0424956-00

PATIENT
  Age: 67 Year
  Sex: Female

DRUGS (4)
  1. KLACID [Suspect]
     Indication: DISSEMINATED TUBERCULOSIS
     Route: 048
     Dates: start: 20050720
  2. RIFABUTIN [Interacting]
     Indication: DISSEMINATED TUBERCULOSIS
     Route: 048
     Dates: start: 20050815, end: 20051005
  3. ETHAMBUTOL HYDROCHLORIDE [Concomitant]
     Indication: DISSEMINATED TUBERCULOSIS
     Route: 048
     Dates: start: 20050720, end: 20050815
  4. OFLOXACIN [Concomitant]
     Indication: DISSEMINATED TUBERCULOSIS
     Route: 048
     Dates: start: 20050916

REACTIONS (5)
  - DRUG INTERACTION [None]
  - DRUG LEVEL INCREASED [None]
  - EYE PAIN [None]
  - IRIDOCYCLITIS [None]
  - VISUAL ACUITY REDUCED [None]
